FAERS Safety Report 5243385-9 (Version None)
Quarter: 2007Q1

REPORT INFORMATION
  Report Type: 
  Country: None (occurrence: None)
  Receive Date: 20061201
  Receipt Date: 20060718
  Transmission Date: 20070707
  Serious: No
  Sender: FDA-Public Use
  Company Number: 2006PV014211

PATIENT
  Age: 66 Year
  Sex: Female
  Weight: 106.1417 kg

DRUGS (7)
  1. BYETTA [Suspect]
     Indication: DIABETES MELLITUS NON-INSULIN-DEPENDENT
     Dosage: 5 MCG; BID; SC
     Route: 058
     Dates: start: 20060406, end: 20060813
  2. BYETTA [Suspect]
  3. HUMULIN R [Concomitant]
  4. ZANTAC [Concomitant]
  5. ACIPHEX [Concomitant]
  6. TUMS [Concomitant]
  7. ROLAIDS [Concomitant]

REACTIONS (5)
  - ABDOMINAL PAIN UPPER [None]
  - DRUG INEFFECTIVE [None]
  - NAUSEA [None]
  - THERAPEUTIC RESPONSE UNEXPECTED [None]
  - WEIGHT INCREASED [None]
